FAERS Safety Report 9059907 (Version 1)
Quarter: 2013Q1

REPORT INFORMATION
  Report Type: Spontaneous
  Country: US (occurrence: None)
  Receive Date: 20130206
  Receipt Date: 20130206
  Transmission Date: 20140127
  Serious: Yes (Other)
  Sender: FDA-Public Use
  Company Number: None

PATIENT
  Age: 53 Year
  Sex: Female
  Weight: 136 kg

DRUGS (1)
  1. CEVIMELINE [Suspect]
     Indication: SJOGREN^S SYNDROME
     Route: 048
     Dates: start: 201211

REACTIONS (5)
  - Dry mouth [None]
  - Dysphonia [None]
  - Dry eye [None]
  - Tooth fracture [None]
  - Product substitution issue [None]
